FAERS Safety Report 8322966-X (Version None)
Quarter: 2012Q2

REPORT INFORMATION
  Report Type: 
  Country: None (occurrence: None)
  Receive Date: 20120430
  Receipt Date: 20120425
  Transmission Date: 20120825
  Serious: Yes (Hospitalization)
  Sender: FDA-Public Use
  Company Number: US-ACTELION-A-NJ2012-64214

PATIENT

DRUGS (1)
  1. TRACLEER [Suspect]
     Indication: PULMONARY ARTERIAL HYPERTENSION
     Dosage: UNK
     Route: 048
     Dates: start: 20070918

REACTIONS (5)
  - PULMONARY HYPERTENSION [None]
  - SCLERODERMA [None]
  - HYPERTENSION [None]
  - SPINAL COLUMN INJURY [None]
  - CHRONIC OBSTRUCTIVE PULMONARY DISEASE [None]
